FAERS Safety Report 4888655-9 (Version None)
Quarter: 2005Q4

REPORT INFORMATION
  Report Type: 
  Country: None (occurrence: None)
  Receive Date: 20051216
  Receipt Date: 20050825
  Transmission Date: 20060501
  Serious: No
  Sender: FDA-Public Use
  Company Number: USA0508106488

PATIENT
  Sex: Male

DRUGS (3)
  1. CIALIS [Suspect]
     Indication: ERECTILE DYSFUNCTION
     Dosage: 20 MG
  2. LUVOX [Concomitant]
  3. XANAX [Concomitant]

REACTIONS (1)
  - EJACULATION DELAYED [None]
